FAERS Safety Report 10220594 (Version 1)
Quarter: 2014Q2

REPORT INFORMATION
  Report Type: Spontaneous
  Country: US (occurrence: None)
  Receive Date: 20140605
  Receipt Date: 20140605
  Transmission Date: 20141212
  Serious: No
  Sender: FDA-Public Use
  Company Number: None

PATIENT
  Age: 34 Year
  Sex: Female
  Weight: 68.04 kg

DRUGS (5)
  1. RESTASIS 0.05% [Suspect]
     Indication: DRY EYE
     Dosage: INTO THE EYE
     Dates: start: 20140511, end: 20140523
  2. WELLBUTRIN [Concomitant]
  3. DESIPRAMINE [Concomitant]
  4. SPIRONOLACTONE [Concomitant]
  5. VITAMIN [Concomitant]

REACTIONS (7)
  - Wrong technique in drug usage process [None]
  - Swelling face [None]
  - Vision blurred [None]
  - Eye irritation [None]
  - Foreign body sensation in eyes [None]
  - Dry eye [None]
  - Condition aggravated [None]
